FAERS Safety Report 15811567 (Version 3)
Quarter: 2020Q3

REPORT INFORMATION
  Report Type: Spontaneous
  Country: US (occurrence: US)
  Receive Date: 20190111
  Receipt Date: 20200812
  Transmission Date: 20201102
  Serious: No
  Sender: FDA-Public Use
  Company Number: US-PFIZER INC-2019012622

PATIENT
  Age: 43 Year
  Sex: Female

DRUGS (2)
  1. GENOTROPIN MQ [Suspect]
     Active Substance: SOMATROPIN
     Indication: POSTPARTUM HYPOPITUITARISM
     Dosage: 0.4 MG, 5 DAYS A WEEK
     Route: 058
     Dates: start: 20170213
  2. GENOTROPIN MQ [Suspect]
     Active Substance: SOMATROPIN
     Indication: GROWTH HORMONE DEFICIENCY
     Dosage: 0.8 MG, 2X/WEEK
     Dates: start: 20170213

REACTIONS (8)
  - Blood cholesterol increased [Unknown]
  - Hyperhidrosis [Unknown]
  - Non-high-density lipoprotein cholesterol increased [Unknown]
  - Acrochordon [Unknown]
  - Temperature intolerance [Unknown]
  - Fatigue [Unknown]
  - Low density lipoprotein increased [Unknown]
  - Melanocytic naevus [Unknown]

NARRATIVE: CASE EVENT DATE: 20181120
